FAERS Safety Report 4286925-9 (Version None)
Quarter: 2004Q1

REPORT INFORMATION
  Report Type: 
  Country: None (occurrence: None)
  Receive Date: 20040204
  Receipt Date: 20040121
  Transmission Date: 20041129
  Serious: Yes (Other)
  Sender: FDA-Public Use
  Company Number: US-JNJFOC-20040104211

PATIENT
  Age: 60 Year
  Sex: Male

DRUGS (14)
  1. INFLIXIMAB (INFLIXIMAB, RECOMBINANT) LYOPHILIZED POWDER [Suspect]
     Indication: RHEUMATOID ARTHRITIS
     Dosage: INTRAVENOUS
     Route: 042
     Dates: start: 20020621, end: 20021101
  2. ARTHROTEC [Concomitant]
  3. CELEXA [Concomitant]
  4. FOLIC ACID [Concomitant]
  5. LEVAQUIN [Concomitant]
  6. METOPROLOL SUCCINATE [Concomitant]
  7. METROGEL [Concomitant]
  8. OXYCONTIN [Concomitant]
  9. PREDNISONE [Concomitant]
  10. PROPOX-N (DEXTROPROPOXYPHENE NAPSILATE) [Concomitant]
  11. PRILOSEC [Concomitant]
  12. TRAZODONE HCL [Concomitant]
  13. ASPIRIN [Concomitant]
  14. METHOTREXATE [Concomitant]

REACTIONS (1)
  - SYSTEMIC LUPUS ERYTHEMATOSUS [None]
